FAERS Safety Report 15884242 (Version 5)
Quarter: 2019Q1

REPORT INFORMATION
  Report Type: Spontaneous
  Country: US (occurrence: US)
  Receive Date: 20190129
  Receipt Date: 20190304
  Transmission Date: 20190417
  Serious: No
  Sender: FDA-Public Use
  Company Number: US-PFIZER INC-2018435673

PATIENT
  Age: 64 Year
  Sex: Male
  Weight: 112.4 kg

DRUGS (6)
  1. LYRICA [Suspect]
     Active Substance: PREGABALIN
     Indication: SPINAL CLAUDICATION
     Dosage: 75 MG, 3X/DAY (THREE CAPSULES (225 MG TOTAL) TWO TIMES A DAY)
     Route: 048
     Dates: start: 20190122
  2. LYRICA [Suspect]
     Active Substance: PREGABALIN
     Indication: LUMBAR SPINAL STENOSIS
     Dosage: 75 MG, 2X/DAY
     Route: 048
     Dates: start: 201812
  3. LYRICA [Suspect]
     Active Substance: PREGABALIN
     Indication: VERTEBRAL FORAMINAL STENOSIS
  4. LYRICA [Suspect]
     Active Substance: PREGABALIN
     Indication: PAIN IN EXTREMITY
  5. LYRICA [Suspect]
     Active Substance: PREGABALIN
     Indication: NEUROPATHY PERIPHERAL
  6. LYRICA [Suspect]
     Active Substance: PREGABALIN
     Indication: BURNING SENSATION

REACTIONS (1)
  - Drug ineffective [Unknown]
